FAERS Safety Report 6483493-8 (Version None)
Quarter: 2009Q4

REPORT INFORMATION
  Report Type: 
  Country: None (occurrence: None)
  Receive Date: 20091208
  Receipt Date: 20091208
  Transmission Date: 20100525
  Serious: Yes (Other)
  Sender: FDA-Public Use
  Company Number: None

PATIENT
  Sex: Male
  Weight: 39.0093 kg

DRUGS (2)
  1. DAYTRANA [Suspect]
     Indication: ATTENTION DEFICIT/HYPERACTIVITY DISORDER
     Dosage: 1 20 MG PATCH DAILY TRANSDERMAL
     Route: 062
     Dates: start: 20091203, end: 20091204
  2. SERTRALINE HCL [Concomitant]

REACTIONS (3)
  - DEPRESSION [None]
  - SCRATCH [None]
  - SUICIDAL IDEATION [None]
